FAERS Safety Report 16651833 (Version 1)
Quarter: 2019Q3

REPORT INFORMATION
  Report Type: Spontaneous
  Country: US (occurrence: US)
  Receive Date: 20190730
  Receipt Date: 20190730
  Transmission Date: 20191004
  Serious: Yes (Disabling)
  Sender: FDA-Public Use
  Company Number: None

PATIENT
  Age: 37 Year
  Sex: Female
  Weight: 77.4 kg

DRUGS (1)
  1. CIPROFLOXACIN HCL [Suspect]
     Active Substance: CIPROFLOXACIN HYDROCHLORIDE
     Indication: ORAL INFECTION
     Dosage: ?          QUANTITY:1 TABLET(S);?
     Route: 048
     Dates: start: 20180615, end: 20180617

REACTIONS (8)
  - Blood creatine phosphokinase increased [None]
  - Musculoskeletal pain [None]
  - Paraesthesia [None]
  - Tendon disorder [None]
  - Pain [None]
  - C-reactive protein increased [None]
  - Muscle tightness [None]
  - Hypoaesthesia [None]

NARRATIVE: CASE EVENT DATE: 20180617
